FAERS Safety Report 19509758 (Version 1)
Quarter: 2021Q3

REPORT INFORMATION
  Report Type: Other
  Country: DE (occurrence: DE)
  Receive Date: 20210709
  Receipt Date: 20210709
  Transmission Date: 20211014
  Serious: Yes (Other)
  Sender: FDA-Public Use
  Company Number: DE-ROCHE-2863416

PATIENT

DRUGS (1)
  1. RITUXIMAB. [Suspect]
     Active Substance: RITUXIMAB
     Indication: RHEUMATOID ARTHRITIS
     Dosage: 680 MG, EVERY 4 WEEKS
     Route: 042

REACTIONS (4)
  - Off label use [Unknown]
  - Foot deformity [Recovered/Resolved]
  - Underdose [Unknown]
  - Skin ulcer [Recovered/Resolved]

NARRATIVE: CASE EVENT DATE: 20201207
